FAERS Safety Report 8715988 (Version 4)
Quarter: 2013Q1

REPORT INFORMATION
  Report Type: Report from Study
  Country: US (occurrence: US)
  Receive Date: 20120809
  Receipt Date: 20130125
  Transmission Date: 20140127
  Serious: Yes (Hospitalization, Other)
  Sender: FDA-Public Use
  Company Number: US-ABBOTT-12P-163-0965088-00

PATIENT
  Sex: Male
  Weight: 86.26 kg

DRUGS (3)
  1. HUMIRA 40 MG/0.8 ML PEN [Suspect]
     Indication: CROHN^S DISEASE
     Dates: start: 2007, end: 20120721
  2. HUMIRA 40 MG/0.8 ML PEN [Suspect]
     Indication: RHEUMATOID ARTHRITIS
  3. IMODIUM [Concomitant]
     Indication: DIARRHOEA
     Dosage: PRN

REACTIONS (3)
  - Anal fistula [Not Recovered/Not Resolved]
  - Cellulitis [Recovering/Resolving]
  - Staphylococcal infection [Unknown]
